APPROVED DRUG PRODUCT: LOPERAMIDE HYDROCHLORIDE AND SIMETHICONE
Active Ingredient: LOPERAMIDE HYDROCHLORIDE; SIMETHICONE
Strength: 2MG;125MG
Dosage Form/Route: TABLET;ORAL
Application: A209837 | Product #001
Applicant: PERRIGO R AND D CO
Approved: Sep 5, 2018 | RLD: No | RS: No | Type: OTC